FAERS Safety Report 18474431 (Version 2)
Quarter: 2021Q1

REPORT INFORMATION
  Report Type: Spontaneous
  Country: US (occurrence: US)
  Receive Date: 20201106
  Receipt Date: 20210318
  Transmission Date: 20210419
  Serious: Yes (Hospitalization, Other)
  Sender: FDA-Public Use
  Company Number: US-ASTRAZENECA-2020SF42224

PATIENT
  Age: 18345 Day
  Sex: Male
  Weight: 83.9 kg

DRUGS (45)
  1. NEXIUM 24HR [Suspect]
     Active Substance: ESOMEPRAZOLE MAGNESIUM
     Indication: GASTROOESOPHAGEAL REFLUX DISEASE
     Route: 048
     Dates: start: 2010, end: 201804
  2. NEXIUM 24HR [Suspect]
     Active Substance: ESOMEPRAZOLE MAGNESIUM
     Indication: GASTROOESOPHAGEAL REFLUX DISEASE
     Route: 048
     Dates: start: 2001, end: 2018
  3. PROTONIX [Suspect]
     Active Substance: PANTOPRAZOLE SODIUM
     Indication: GASTROOESOPHAGEAL REFLUX DISEASE
     Route: 065
     Dates: start: 2000, end: 2005
  4. ACIPHEX [Suspect]
     Active Substance: RABEPRAZOLE SODIUM
     Indication: GASTROOESOPHAGEAL REFLUX DISEASE
     Route: 065
  5. BIOTIN [Concomitant]
     Active Substance: BIOTIN
     Indication: SKIN INJURY
     Dates: start: 2018
  6. TAMSULOSIN [Concomitant]
     Active Substance: TAMSULOSIN
  7. LIDOCAINE. [Concomitant]
     Active Substance: LIDOCAINE
  8. SEROQUEL [Concomitant]
     Active Substance: QUETIAPINE FUMARATE
  9. DOXYCYCLINE. [Concomitant]
     Active Substance: DOXYCYCLINE
  10. NEXIUM [Suspect]
     Active Substance: ESOMEPRAZOLE MAGNESIUM
     Indication: GASTROOESOPHAGEAL REFLUX DISEASE
     Dosage: GENERIC20.0MG UNKNOWN
     Route: 048
     Dates: start: 20190429
  11. BIOTIN [Concomitant]
     Active Substance: BIOTIN
     Indication: HAIR DISORDER
     Dates: start: 2018
  12. TOBRAMYCIN. [Concomitant]
     Active Substance: TOBRAMYCIN
  13. VERSED [Concomitant]
     Active Substance: MIDAZOLAM HYDROCHLORIDE
  14. NEXIUM [Suspect]
     Active Substance: ESOMEPRAZOLE MAGNESIUM
     Indication: GASTROOESOPHAGEAL REFLUX DISEASE
     Dosage: UNKNOWN
     Route: 048
     Dates: start: 2000, end: 2018
  15. VALSARTAN. [Concomitant]
     Active Substance: VALSARTAN
     Indication: HYPERTENSION
     Dates: start: 2018
  16. PEPTO?BISMOL [Concomitant]
     Active Substance: BISMUTH SUBSALICYLATE
     Dates: start: 2019
  17. PREVACID [Suspect]
     Active Substance: LANSOPRAZOLE
     Indication: GASTROOESOPHAGEAL REFLUX DISEASE
     Route: 065
     Dates: start: 1995, end: 2000
  18. CHOLIC ACID [Concomitant]
     Active Substance: CHOLIC ACID
     Indication: ENERGY INCREASED
     Dates: start: 2018
  19. GLUCAGEN [Concomitant]
     Active Substance: GLUCAGON HYDROCHLORIDE
  20. CLINDAMYCIN. [Concomitant]
     Active Substance: CLINDAMYCIN
  21. BUPROPION. [Concomitant]
     Active Substance: BUPROPION
     Indication: DEPRESSION
     Dates: start: 2018
  22. NEXIUM [Suspect]
     Active Substance: ESOMEPRAZOLE MAGNESIUM
     Indication: GASTROOESOPHAGEAL REFLUX DISEASE
     Route: 048
  23. NEXIUM [Suspect]
     Active Substance: ESOMEPRAZOLE MAGNESIUM
     Indication: GASTROOESOPHAGEAL REFLUX DISEASE
     Dosage: GENERIC20.0MG UNKNOWN
     Route: 065
     Dates: start: 2016, end: 2018
  24. PRILOSEC [Suspect]
     Active Substance: OMEPRAZOLE MAGNESIUM
     Indication: GASTROOESOPHAGEAL REFLUX DISEASE
     Route: 048
     Dates: start: 1989, end: 1995
  25. PRILOSEC [Suspect]
     Active Substance: OMEPRAZOLE MAGNESIUM
     Indication: GASTROOESOPHAGEAL REFLUX DISEASE
     Route: 048
     Dates: start: 2000, end: 2018
  26. LISINOPRIL. [Concomitant]
     Active Substance: LISINOPRIL
     Indication: HYPERTENSION
     Dates: start: 2018, end: 2020
  27. VITAMIN B12 [Concomitant]
     Active Substance: CYANOCOBALAMIN
     Indication: ENERGY INCREASED
     Dates: start: 2018
  28. BIOTIN [Concomitant]
     Active Substance: BIOTIN
     Indication: ONYCHOCLASIS
     Dates: start: 2018
  29. AMLODIPINE [Concomitant]
     Active Substance: AMLODIPINE BESYLATE
  30. PROPOFOL. [Concomitant]
     Active Substance: PROPOFOL
  31. NEXIUM 24HR [Suspect]
     Active Substance: ESOMEPRAZOLE MAGNESIUM
     Indication: GASTROOESOPHAGEAL REFLUX DISEASE
     Dosage: 20.0MG UNKNOWN
     Route: 048
  32. ACIPHEX [Suspect]
     Active Substance: RABEPRAZOLE SODIUM
     Indication: GASTROOESOPHAGEAL REFLUX DISEASE
     Route: 065
     Dates: start: 2000, end: 2018
  33. MULTIVITAMIN [Concomitant]
     Active Substance: VITAMINS
     Indication: MEDICAL DIET
     Dates: start: 2018
  34. RANITIDINE. [Concomitant]
     Active Substance: RANITIDINE
     Dates: start: 2019, end: 2020
  35. OXYCODONE [Concomitant]
     Active Substance: OXYCODONE
  36. ONDANSETRON [Concomitant]
     Active Substance: ONDANSETRON
  37. FENTANYL. [Concomitant]
     Active Substance: FENTANYL
  38. TESTOSTERON [Concomitant]
     Active Substance: TESTOSTERONE
  39. PREVACID [Suspect]
     Active Substance: LANSOPRAZOLE
     Indication: GASTROOESOPHAGEAL REFLUX DISEASE
     Route: 065
     Dates: start: 2000, end: 2018
  40. WELLBUTRIN [Concomitant]
     Active Substance: BUPROPION HYDROCHLORIDE
  41. LOSARTAN. [Concomitant]
     Active Substance: LOSARTAN
     Indication: HYPERTENSION
     Dates: start: 2018
  42. VITAMIN A [Concomitant]
     Active Substance: VITAMIN A
     Indication: SKIN INJURY
     Dates: start: 2018
  43. VITAMIN D3 [Concomitant]
     Active Substance: CHOLECALCIFEROL
     Indication: HYPOVITAMINOSIS
     Dates: start: 2018
  44. ZANTAC [Concomitant]
     Active Substance: RANITIDINE HYDROCHLORIDE
     Dates: start: 2018, end: 2019
  45. SUCRALFATE. [Concomitant]
     Active Substance: SUCRALFATE

REACTIONS (4)
  - Anxiety [Unknown]
  - Renal failure [Unknown]
  - Chronic kidney disease [Not Recovered/Not Resolved]
  - Depression [Unknown]

NARRATIVE: CASE EVENT DATE: 20170421
